FAERS Safety Report 17054078 (Version 1)
Quarter: 2019Q4

REPORT INFORMATION
  Report Type: Spontaneous
  Country: US (occurrence: US)
  Receive Date: 20191120
  Receipt Date: 20191120
  Transmission Date: 20200122
  Serious: Yes (Hospitalization)
  Sender: FDA-Public Use
  Company Number: NVSC2019US034087

PATIENT
  Age: 44 Year
  Sex: Female
  Weight: 63.05 kg

DRUGS (9)
  1. TOPIRAMATE. [Concomitant]
     Active Substance: TOPIRAMATE
     Indication: MIGRAINE WITH AURA
     Dosage: 100 MG, QD
     Route: 065
     Dates: start: 20140312
  2. RIZATRIPTAN BENZOATE. [Concomitant]
     Active Substance: RIZATRIPTAN BENZOATE
     Indication: MIGRAINE WITH AURA
     Dosage: 10 MG, PRN
     Route: 065
     Dates: start: 20150420
  3. VITAMIN D3 [Concomitant]
     Active Substance: CHOLECALCIFEROL
     Indication: VITAMIN D DEFICIENCY
     Dosage: 400 IU, QD
     Route: 065
     Dates: start: 20171128
  4. BACLOFEN. [Concomitant]
     Active Substance: BACLOFEN
     Indication: NEURALGIA
     Dosage: 10 MG, QID
     Route: 065
     Dates: start: 20171128
  5. DULOXETINE. [Concomitant]
     Active Substance: DULOXETINE
     Indication: NEURALGIA
     Dosage: 60 MG, QD
     Route: 065
     Dates: start: 20180802
  6. GABAPENTIN. [Concomitant]
     Active Substance: GABAPENTIN
     Indication: NEURALGIA
     Dosage: 600 MG, QID
     Route: 065
     Dates: start: 20140312
  7. CARBAMAZEPINE. [Suspect]
     Active Substance: CARBAMAZEPINE
     Indication: TRIGEMINAL NEURALGIA
     Dosage: 200 MG, BID
     Route: 065
     Dates: start: 20140312
  8. CARBAMAZEPINE. [Suspect]
     Active Substance: CARBAMAZEPINE
     Dosage: 300 UNK
     Route: 065
     Dates: start: 20180802
  9. FINGOLIMOD. [Concomitant]
     Active Substance: FINGOLIMOD
     Indication: MULTIPLE SCLEROSIS
     Dosage: 0.5 MG
     Route: 048
     Dates: start: 20190911

REACTIONS (11)
  - Cellulitis [Recovered/Resolved]
  - Lethargy [Unknown]
  - Incoherent [Unknown]
  - Swelling face [Unknown]
  - Fall [Unknown]
  - Burning sensation [Unknown]
  - Toxicity to various agents [Recovered/Resolved]
  - Confusional state [Unknown]
  - Erythema [Unknown]
  - Urinary retention [Unknown]
  - Pain [Unknown]

NARRATIVE: CASE EVENT DATE: 20190901
